FAERS Safety Report 7553129 (Version 4)
Quarter: 2013Q3

REPORT INFORMATION
  Report Type: Report from Study
  Country: CA (occurrence: CA)
  Receive Date: 20100825
  Receipt Date: 20130819
  Transmission Date: 20140515
  Serious: Yes (Hospitalization, Other)
  Sender: FDA-Public Use
  Company Number: PHHY2010CA53537

PATIENT
  Sex: Male

DRUGS (2)
  1. CLOZARIL [Suspect]
     Indication: SCHIZOPHRENIA
     Dosage: 150 MG, UNK
     Route: 048
     Dates: start: 20090113, end: 20130710
  2. LATUDA [Concomitant]

REACTIONS (6)
  - Psychiatric decompensation [Unknown]
  - Metabolic disorder [Unknown]
  - Hyperthyroidism [Recovering/Resolving]
  - Hypertension [Recovering/Resolving]
  - Weight increased [Recovering/Resolving]
  - Somnolence [Recovering/Resolving]
